FAERS Safety Report 6389636-9 (Version None)
Quarter: 2009Q4

REPORT INFORMATION
  Report Type: 
  Country: None (occurrence: None)
  Receive Date: 20091006
  Receipt Date: 20090929
  Transmission Date: 20100525
  Serious: No
  Sender: FDA-Public Use
  Company Number: US-B.I. PHARMACEUTICALS,INC./RIDGEFIELD-2009-BP-11452BP

PATIENT
  Sex: Female

DRUGS (3)
  1. SPIRIVA [Suspect]
  2. OXYCODONE HCL AND ACETAMINOPHEN [Concomitant]
     Dosage: 325 MG
  3. CARISOPRODEL [Concomitant]
     Dosage: 350 MG

REACTIONS (4)
  - ABNORMAL DREAMS [None]
  - ANXIETY [None]
  - DEPRESSION [None]
  - INSOMNIA [None]
